FAERS Safety Report 4269049-6 (Version None)
Quarter: 2004Q1

REPORT INFORMATION
  Report Type: 
  Country: None (occurrence: None)
  Receive Date: 20040108
  Receipt Date: 20031224
  Transmission Date: 20041129
  Serious: No
  Sender: FDA-Public Use
  Company Number: A01200306088

PATIENT
  Sex: Male

DRUGS (1)
  1. DANAZOL [Suspect]
     Indication: THROMBOCYTOPENIA

REACTIONS (3)
  - ANTIPHOSPHOLIPID SYNDROME [None]
  - NERVOUS SYSTEM DISORDER [None]
  - RENAL DISORDER [None]
